FAERS Safety Report 8832174 (Version 1)
Quarter: 2012Q4

REPORT INFORMATION
  Report Type: Report from Study
  Country: US (occurrence: US)
  Receive Date: 20121009
  Receipt Date: 20121009
  Transmission Date: 20130627
  Serious: Yes (Death)
  Sender: FDA-Public Use
  Company Number: US-US-EMD SERONO, INC.-7166123

PATIENT
  Age: 57 Year
  Sex: Female
  Weight: 79 kg

DRUGS (4)
  1. REBIF [Suspect]
     Indication: MULTIPLE SCLEROSIS
     Route: 058
     Dates: start: 20111216
  2. UNSPECIFIED MEDICATIONS [Concomitant]
     Indication: BLOOD PRESSURE
  3. UNSPECIFIED MEDICATION [Concomitant]
     Indication: INCONTINENCE
  4. UNSPECIFIED MEDICATION [Concomitant]
     Indication: DEPRESSION

REACTIONS (1)
  - Multiple sclerosis [Fatal]
